FAERS Safety Report 8536464-1 (Version None)
Quarter: 2012Q3

REPORT INFORMATION
  Report Type: 
  Country: None (occurrence: None)
  Receive Date: 20120725
  Receipt Date: 20120719
  Transmission Date: 20120928
  Serious: Yes (Death, Other)
  Sender: FDA-Public Use
  Company Number: GB-ROCHE-1030474

PATIENT
  Sex: Male
  Weight: 96 kg

DRUGS (4)
  1. MYCOPHENOLATE MOFETIL [Concomitant]
     Dates: start: 20110908
  2. STEROIDS - UNKNOWN TYPE [Concomitant]
  3. MABTHERA [Suspect]
     Indication: RHEUMATOID ARTHRITIS
     Dosage: LAST DOSE PRIOR TO SAE: 14/DEC/2011
     Dates: start: 20090518
  4. HYDROXYCHLOROQUINE SULFATE [Concomitant]
     Dates: start: 20101130

REACTIONS (3)
  - PULMONARY FUNCTION TEST DECREASED [None]
  - DEATH [None]
  - PULMONARY FIBROSIS [None]
